FAERS Safety Report 6070421-2 (Version None)
Quarter: 2009Q1

REPORT INFORMATION
  Report Type: 
  Country: None (occurrence: None)
  Receive Date: 20090209
  Receipt Date: 20090203
  Transmission Date: 20090719
  Serious: Yes (Death)
  Sender: FDA-Public Use
  Company Number: PHEH2009US01394

PATIENT
  Sex: Male

DRUGS (3)
  1. ZOMETA [Suspect]
     Indication: PROSTATE CANCER
     Dosage: UNK, UNK
  2. ZOMETA [Suspect]
     Indication: METASTASES TO BONE
  3. RADIATION THERAPY [Concomitant]
     Dosage: UNK, UNK

REACTIONS (1)
  - DEATH [None]
